FAERS Safety Report 8518538-4 (Version None)
Quarter: 2012Q3

REPORT INFORMATION
  Report Type: 
  Country: None (occurrence: None)
  Receive Date: 20120718
  Receipt Date: 20120503
  Transmission Date: 20120928
  Serious: No
  Sender: FDA-Public Use
  Company Number: US-BRISTOL-MYERS SQUIBB COMPANY-16570012

PATIENT
  Age: 79 Year
  Sex: Female

DRUGS (6)
  1. LISINOPRIL [Concomitant]
  2. FUROSEMIDE [Concomitant]
  3. TOPROL-XL [Concomitant]
  4. POTASSIUM CHLORIDE [Concomitant]
  5. COUMADIN [Suspect]
     Dosage: 1DF=1 PILL
     Dates: start: 20120428
  6. PRAVASTATIN SODIUM [Concomitant]

REACTIONS (2)
  - NAUSEA [None]
  - DYSGEUSIA [None]
